FAERS Safety Report 12850315 (Version 1)
Quarter: 2016Q4

REPORT INFORMATION
  Report Type: Spontaneous
  Country: None (occurrence: US)
  Receive Date: 20161014
  Receipt Date: 20161014
  Transmission Date: 20170207
  Serious: Yes (Hospitalization)
  Sender: FDA-Public Use
  Company Number: US-STANDARD HOMEOPATHIC COMPANY-1058365

PATIENT
  Age: 7 Month
  Sex: Female

DRUGS (1)
  1. BABY TEETHING (HYLAND HOMEOPATHIC) [Suspect]
     Active Substance: HOMEOPATHICS
     Indication: TEETHING
     Route: 048
     Dates: start: 201607, end: 201607

REACTIONS (2)
  - Seizure [None]
  - Rash [None]

NARRATIVE: CASE EVENT DATE: 20160703
